FAERS Safety Report 23614125 (Version 1)
Quarter: 2024Q1

REPORT INFORMATION
  Report Type: Spontaneous
  Country: AU (occurrence: AU)
  Receive Date: 20240310
  Receipt Date: 20240310
  Transmission Date: 20240410
  Serious: Yes (Other)
  Sender: FDA-Public Use
  Company Number: AU-JNJFOC-20240303686

PATIENT

DRUGS (1)
  1. IMBRUVICA [Suspect]
     Active Substance: IBRUTINIB
     Indication: Chronic lymphocytic leukaemia
     Route: 048

REACTIONS (4)
  - Chronic lymphocytic leukaemia [Unknown]
  - Drug ineffective [Unknown]
  - COVID-19 [Unknown]
  - Immunosuppression [Unknown]
